FAERS Safety Report 24015953 (Version 1)
Quarter: 2024Q2

REPORT INFORMATION
  Report Type: Spontaneous
  Country: JP (occurrence: JP)
  Receive Date: 20240626
  Receipt Date: 20240626
  Transmission Date: 20240716
  Serious: Yes (Death, Hospitalization)
  Sender: FDA-Public Use
  Company Number: JP-ACELLA PHARMACEUTICALS, LLC-2024ALO00265

PATIENT
  Age: 4 Decade
  Sex: Female
  Weight: 57.2 kg

DRUGS (10)
  1. DEXTROMETHORPHAN [Suspect]
     Active Substance: DEXTROMETHORPHAN
     Route: 048
  2. MIRTAZAPINE [Suspect]
     Active Substance: MIRTAZAPINE
  3. NITRAZEPAM [Concomitant]
     Active Substance: NITRAZEPAM
  4. VALPROIC ACID [Concomitant]
     Active Substance: VALPROIC ACID
  5. FLUNITRAZEPAM [Concomitant]
     Active Substance: FLUNITRAZEPAM
  6. ALPRAZOLAM [Concomitant]
     Active Substance: ALPRAZOLAM
  7. KETOPROFEN [Concomitant]
     Active Substance: KETOPROFEN
  8. TRANEXAMIC ACID [Concomitant]
     Active Substance: TRANEXAMIC ACID
  9. PROPRANOLOL [Concomitant]
     Active Substance: PROPRANOLOL HYDROCHLORIDE
  10. CHLORPHENESIN [Concomitant]
     Active Substance: CHLORPHENESIN

REACTIONS (6)
  - Loss of consciousness [Not Recovered/Not Resolved]
  - Respiratory arrest [Fatal]
  - Toxicity to various agents [Fatal]
  - Drug interaction [Fatal]
  - Necrosis [Fatal]
  - Overdose [Fatal]
